FAERS Safety Report 24750723 (Version 2)
Quarter: 2025Q2

REPORT INFORMATION
  Report Type: Spontaneous
  Country: JP (occurrence: JP)
  Receive Date: 20241218
  Receipt Date: 20250619
  Transmission Date: 20250716
  Serious: Yes (Other)
  Sender: GLAXOSMITHKLINE
  Company Number: JP-GSK-JP2024156381

PATIENT
  Age: 80 Year
  Sex: Male
  Weight: 62.7 kg

DRUGS (6)
  1. NUCALA [Suspect]
     Active Substance: MEPOLIZUMAB
     Indication: Asthma
  2. SPIRIVA [Concomitant]
     Active Substance: TIOTROPIUM BROMIDE MONOHYDRATE
     Indication: Asthma
     Dosage: 2 INHALATIONS PER DOSE, QD
  3. FLUTIFORM [Concomitant]
     Active Substance: FLUTIFORM
     Indication: Asthma
     Dosage: 2 INHALATIONS X 2 DOSES, QD
  4. QVAR [Concomitant]
     Active Substance: BECLOMETHASONE DIPROPIONATE
     Indication: Asthma
     Dosage: 1 INHALATION PER DOSE, QD
  5. PREDONINE [Concomitant]
     Active Substance: PREDNISOLONE
     Indication: Asthma
  6. MONTELUKAST SODIUM [Concomitant]
     Active Substance: MONTELUKAST SODIUM
     Indication: Asthma

REACTIONS (4)
  - Compression fracture [Unknown]
  - Back pain [Recovering/Resolving]
  - Osteoporosis [Unknown]
  - Decreased activity [Unknown]

NARRATIVE: CASE EVENT DATE: 20241118
